FAERS Safety Report 4978881-2 (Version None)
Quarter: 2006Q2

REPORT INFORMATION
  Report Type: 
  Country: None (occurrence: None)
  Receive Date: 20060417
  Receipt Date: 20060407
  Transmission Date: 20061013
  Serious: Yes (Hospitalization)
  Sender: FDA-Public Use
  Company Number: 2006-01-1553

PATIENT
  Age: 57 Year
  Sex: Female
  Weight: 46 kg

DRUGS (8)
  1. REBETOL [Suspect]
     Indication: HEPATITIS C
     Dosage: 800-600 MG ORAL; 800 MG ORAL; 600 MG ORAL
     Route: 048
     Dates: start: 20050113, end: 20051018
  2. REBETOL [Suspect]
     Indication: HEPATITIS C
     Dosage: 800-600 MG ORAL; 800 MG ORAL; 600 MG ORAL
     Route: 048
     Dates: start: 20050113, end: 20051214
  3. REBETOL [Suspect]
     Indication: HEPATITIS C
     Dosage: 800-600 MG ORAL; 800 MG ORAL; 600 MG ORAL
     Route: 048
     Dates: start: 20051019, end: 20051214
  4. INTRON A [Suspect]
     Indication: HEPATITIS C
     Dosage: 6 MIU QD-TIW INTRAMUSCULAR
     Route: 030
     Dates: start: 20050113, end: 20050127
  5. INTRON A [Suspect]
     Indication: HEPATITIS C
     Dosage: 6 MIU QD-TIW INTRAMUSCULAR
     Route: 030
     Dates: start: 20050113, end: 20051214
  6. INTRON A [Suspect]
     Indication: HEPATITIS C
     Dosage: 6 MIU QD-TIW INTRAMUSCULAR
     Route: 030
     Dates: start: 20050128, end: 20051214
  7. RABEPRAZOLE SODIUM [Concomitant]
  8. VOLTAREN - SLOW RELEASE CAPSULES [Concomitant]

REACTIONS (6)
  - CONDITION AGGRAVATED [None]
  - HEPATITIS B [None]
  - PLATELET COUNT DECREASED [None]
  - POST PROCEDURAL COMPLICATION [None]
  - REBOUND EFFECT [None]
  - WHITE BLOOD CELL COUNT DECREASED [None]
